FAERS Safety Report 8711337 (Version 2)
Quarter: 2012Q4

REPORT INFORMATION
  Report Type: 
  Country: US (occurrence: US)
  Receive Date: 20120807
  Receipt Date: 20120913
  Transmission Date: 20130627
  Serious: Yes (Other)
  Sender: FDA-Public Use
  Company Number: US-ROCHE-1097691

PATIENT
  Sex: Male

DRUGS (7)
  1. XOLAIR [Suspect]
     Indication: ASTHMA
     Route: 065
     Dates: start: 2004, end: 2006
  2. XOLAIR [Suspect]
     Indication: RHINITIS SEASONAL
  3. SINGULAIR [Concomitant]
  4. ADVAIR [Concomitant]
  5. ALBUTEROL [Concomitant]
  6. PULMICORT [Concomitant]
  7. PREDNISONE [Concomitant]

REACTIONS (5)
  - Chest discomfort [Unknown]
  - Cough [Unknown]
  - Wheezing [Unknown]
  - Malaise [Unknown]
  - Influenza like illness [Unknown]
